FAERS Safety Report 9228563 (Version 3)
Quarter: 2013Q2

REPORT INFORMATION
  Report Type: Spontaneous
  Country: JP (occurrence: JP)
  Receive Date: 20130412
  Receipt Date: 20130501
  Transmission Date: 20140414
  Serious: Yes (Hospitalization)
  Sender: FDA-Public Use
  Company Number: JP-ROCHE-1211664

PATIENT
  Age: 68 Year
  Sex: Male

DRUGS (2)
  1. NU-LOTAN [Concomitant]
     Indication: HYPERTENSION
     Route: 048
     Dates: start: 20100408
  2. MIRCERA [Suspect]
     Indication: NEPHROGENIC ANAEMIA
     Route: 058
     Dates: start: 20120726, end: 20130313

REACTIONS (2)
  - Haemoglobin decreased [Not Recovered/Not Resolved]
  - Azotaemia [Unknown]
